FAERS Safety Report 22192656 (Version 1)
Quarter: 2023Q2

REPORT INFORMATION
  Report Type: Spontaneous
  Country: US (occurrence: None)
  Receive Date: 20230410
  Receipt Date: 20230410
  Transmission Date: 20230722
  Serious: Yes (Disabling)
  Sender: FDA-Public Use
  Company Number: None

PATIENT
  Age: 29 Year
  Sex: Female

DRUGS (10)
  1. PROACTIV [Suspect]
     Active Substance: BENZOYL PEROXIDE
     Indication: Acne
     Dates: start: 20230315, end: 20230410
  2. Busperine [Concomitant]
  3. LAMICTAL [Concomitant]
     Active Substance: LAMOTRIGINE
  4. APRI [Concomitant]
     Active Substance: DESOGESTREL\ETHINYL ESTRADIOL
  5. levolthryoxine [Concomitant]
  6. UNSPECIFIED INGREDIENT [Concomitant]
     Active Substance: UNSPECIFIED INGREDIENT
  7. EPIPEN [Concomitant]
     Active Substance: EPINEPHRINE
  8. BIOTIN [Concomitant]
     Active Substance: BIOTIN
  9. ONE-A-DAY NOS [Concomitant]
     Active Substance: MINERALS\VITAMINS
  10. VITAMIN D [Concomitant]
     Active Substance: VITAMIN D NOS

REACTIONS (7)
  - Swelling face [None]
  - Urticaria [None]
  - Erythema [None]
  - Skin irritation [None]
  - Pruritus [None]
  - Skin exfoliation [None]
  - Application site reaction [None]

NARRATIVE: CASE EVENT DATE: 20230410
